FAERS Safety Report 7749480-4 (Version None)
Quarter: 2011Q3

REPORT INFORMATION
  Report Type: 
  Country: None (occurrence: None)
  Receive Date: 20110914
  Receipt Date: 20110831
  Transmission Date: 20111222
  Serious: Yes (Hospitalization)
  Sender: FDA-Public Use
  Company Number: PHFR2011GB01973

PATIENT
  Sex: Female

DRUGS (6)
  1. VALPROATE SODIUM [Concomitant]
     Dosage: 1200 MG, NOCTE
     Route: 048
  2. VENLAFAXINE HYDROCHLORIDE [Concomitant]
     Dosage: 150 MG, NOCTE
     Route: 048
  3. ZOPICLONE [Concomitant]
     Dosage: 7.5 MG, NOCTE
     Route: 048
  4. DIAZEPAM [Concomitant]
     Dosage: 5 MG, NOCTE
     Route: 048
  5. LEVOTHYROXINE SODIUM [Concomitant]
     Dosage: 100 UG, NOCTE
     Route: 048
  6. CLOZAPINE [Suspect]
     Indication: SCHIZOPHRENIA
     Dosage: 400 MG, NOCTE
     Route: 048
     Dates: start: 20020730

REACTIONS (1)
  - INTENTIONAL SELF-INJURY [None]
